FAERS Safety Report 24182693 (Version 1)
Quarter: 2024Q3

REPORT INFORMATION
  Report Type: Spontaneous
  Country: US (occurrence: US)
  Receive Date: 20240807
  Receipt Date: 20240807
  Transmission Date: 20241017
  Serious: No
  Sender: SANDOZ
  Company Number: US-SANDOZ-SDZ2024US071009

PATIENT
  Sex: Male

DRUGS (1)
  1. BRIMONIDINE TARTRATE [Suspect]
     Active Substance: BRIMONIDINE TARTRATE
     Indication: Product used for unknown indication
     Dosage: 1 DROP PER EYE, 2X DAILY AND THEN INCREASED TO 2 DROPS IN EACH EYE FOR THE NEXT TWO DAYS.
     Route: 065

REACTIONS (1)
  - Vertigo [Not Recovered/Not Resolved]
